FAERS Safety Report 8294289-9 (Version None)
Quarter: 2012Q2

REPORT INFORMATION
  Report Type: 
  Country: None (occurrence: None)
  Receive Date: 20120418
  Receipt Date: 20120410
  Transmission Date: 20120825
  Serious: Yes (Life-Threatening, Hospitalization, Other)
  Sender: FDA-Public Use
  Company Number: FR-UCBSA-024277

PATIENT
  Age: 22 Year
  Sex: Female

DRUGS (33)
  1. LOXAPINE HCL [Suspect]
     Indication: PSYCHOTIC DISORDER
     Route: 042
     Dates: start: 20100913, end: 20101003
  2. EFFEXOR [Concomitant]
     Dates: start: 20100903, end: 20101001
  3. LEVOTHYROXINE SODIUM [Concomitant]
     Dates: start: 20091107, end: 20100915
  4. LOXAPINE HCL [Suspect]
     Indication: AGITATION
     Route: 042
     Dates: start: 20100913, end: 20101003
  5. DIPRIVAN [Concomitant]
     Dates: start: 20100902, end: 20100911
  6. MIDAZOLAM HCL [Concomitant]
     Dates: start: 20100910, end: 20100913
  7. FOLDINE [Concomitant]
     Dates: start: 20100918, end: 20100929
  8. LASILEX [Concomitant]
     Dates: start: 20100905, end: 20100915
  9. NEXIUM [Concomitant]
     Dates: start: 20100907, end: 20100910
  10. SECTRAL [Concomitant]
     Dates: start: 20100915, end: 20101003
  11. ACETAMINOPHEN [Concomitant]
     Dates: start: 20100903, end: 20100909
  12. MORPHINE [Concomitant]
     Dates: start: 20100918, end: 20100922
  13. GENTALLINE (GENTAMICINE) [Concomitant]
     Indication: PNEUMONIA
     Route: 042
     Dates: start: 20100914, end: 20100917
  14. EFFEXOR [Concomitant]
     Indication: DEPRESSION
     Dosage: ORAL/IV
     Dates: start: 20080101
  15. ERYTHROMYCIN [Concomitant]
     Dates: start: 20100907, end: 20100911
  16. CLONAZEPAM [Concomitant]
     Dates: start: 20100902, end: 20100903
  17. LOVENOX [Concomitant]
     Dates: start: 20100905, end: 20101002
  18. FERROUS SULFATE TAB [Suspect]
     Dates: start: 20100918, end: 20100929
  19. CELOCURINE [Concomitant]
     Dates: start: 20100902, end: 20100918
  20. GENTAMICIN [Concomitant]
     Dates: start: 20100902, end: 20100918
  21. NORCURON [Concomitant]
     Dates: start: 20100910, end: 20100913
  22. KEPPRA [Suspect]
     Indication: EPILEPSY
     Route: 042
     Dates: start: 20100902, end: 20101003
  23. FLAMMAZINE CREAM [Suspect]
     Indication: INFECTION PROPHYLAXIS
     Route: 061
     Dates: start: 20100904, end: 20101003
  24. SPECIALFOLDINE [Suspect]
     Dosage: DOSE: UNKNOWN
     Dates: start: 20100918, end: 20100929
  25. LEXOMIL [Concomitant]
     Indication: AGITATION
     Dates: start: 20100929
  26. DAFFALGAN [Concomitant]
     Dates: start: 20100916, end: 20101002
  27. ETOMIDATE [Concomitant]
     Dates: start: 20100902, end: 20100918
  28. SUFENTANIL CITRATE [Concomitant]
     Dates: start: 20100902, end: 20100918
  29. SOLU-MEDROL [Concomitant]
     Dates: start: 20100910, end: 20100913
  30. BRICANYL [Concomitant]
     Dates: start: 20100913, end: 20100914
  31. ISUPREL [Concomitant]
     Dates: start: 20100902, end: 20100903
  32. ACTRAPID [Concomitant]
     Dates: start: 20100903, end: 20100919
  33. ORBENIN CAP [Concomitant]
     Dates: start: 20100902, end: 20100918

REACTIONS (5)
  - SEPTIC SHOCK [None]
  - DEPRESSION [None]
  - TOXIC EPIDERMAL NECROLYSIS [None]
  - ANXIETY [None]
  - PNEUMONIA STAPHYLOCOCCAL [None]
